FAERS Safety Report 19857780 (Version 2)
Quarter: 2021Q3

REPORT INFORMATION
  Report Type: Other
  Country: RU (occurrence: RU)
  Receive Date: 20210920
  Receipt Date: 20210928
  Transmission Date: 20211014
  Serious: Yes (Hospitalization)
  Sender: FDA-Public Use
  Company Number: RU-EMD SERONO-9264412

PATIENT
  Age: 16 Year
  Sex: Female
  Weight: 131 kg

DRUGS (2)
  1. METFORMIN [Suspect]
     Active Substance: METFORMIN HYDROCHLORIDE
  2. METFORMIN [Suspect]
     Active Substance: METFORMIN HYDROCHLORIDE
     Indication: TYPE 2 DIABETES MELLITUS
     Dosage: 500 MG IN THE MORNING AND 1000 MG IN THE EVENING

REACTIONS (4)
  - Hypertension [Unknown]
  - Obesity [Unknown]
  - Polycystic ovaries [Unknown]
  - Nonalcoholic fatty liver disease [Unknown]
